FAERS Safety Report 8869123 (Version 1)
Quarter: 2012Q4

REPORT INFORMATION
  Report Type: 
  Country: US (occurrence: US)
  Receive Date: 20121023
  Receipt Date: 20121023
  Transmission Date: 20130627
  Serious: No
  Sender: FDA-Public Use
  Company Number: US-AMGEN-USASP2012053955

PATIENT
  Age: 51 Year
  Sex: Male

DRUGS (1)
  1. ENBREL [Suspect]
     Indication: RHEUMATOID ARTHRITIS
     Dosage: 50 UNK, qwk
     Route: 058
     Dates: start: 20111202, end: 20120215

REACTIONS (5)
  - Laceration [Recovered/Resolved]
  - Impaired healing [Recovered/Resolved]
  - Drug effect incomplete [Unknown]
  - Wound infection [Recovered/Resolved]
  - Nasopharyngitis [Recovered/Resolved]
